FAERS Safety Report 24837180 (Version 3)
Quarter: 2025Q1

REPORT INFORMATION
  Report Type: Report from Study
  Country: KR (occurrence: KR)
  Receive Date: 20250113
  Receipt Date: 20250212
  Transmission Date: 20250409
  Serious: Yes (Death, Hospitalization)
  Sender: KARYOPHARM THERAPEUTICS
  Company Number: KR-ANTENGENE-20250102942

PATIENT
  Age: 67 Year
  Sex: Male
  Weight: 64.4 kg

DRUGS (11)
  1. SELINEXOR [Suspect]
     Active Substance: SELINEXOR
     Indication: Plasma cell myeloma
     Dosage: 80 MG, WEEKLY
     Route: 048
     Dates: start: 20241224, end: 20250102
  2. DEXAMETHASONE [Concomitant]
     Active Substance: DEXAMETHASONE
     Indication: Plasma cell myeloma
     Route: 048
     Dates: start: 20241224
  3. LASIX [Concomitant]
     Active Substance: FUROSEMIDE
     Indication: Cardiac failure
     Route: 042
     Dates: start: 20241224, end: 20241224
  4. ELIQUIS [Concomitant]
     Active Substance: APIXABAN
     Indication: Cardiac failure
     Dosage: 2.5 MG, BID
     Route: 048
     Dates: start: 20241224
  5. SULFAMETHOXAZOLE\TRIMETHOPRIM [Concomitant]
     Active Substance: SULFAMETHOXAZOLE\TRIMETHOPRIM
     Indication: Prophylaxis
     Dosage: 400 MG, QD
     Route: 048
     Dates: start: 20241224
  6. ALMAGEL-F [Concomitant]
     Indication: Prophylaxis
     Dosage: 15 ML, QD
     Route: 048
     Dates: start: 20241224
  7. ONSERAN [Concomitant]
     Indication: Prophylaxis
     Dosage: 8 MG, QD
     Route: 048
     Dates: start: 20241224
  8. ZOYLEX [ACICLOVIR] [Concomitant]
     Indication: Prophylaxis
     Dosage: 200 MG, QD
     Route: 048
     Dates: start: 20241224
  9. NEXIUM [Concomitant]
     Active Substance: ESOMEPRAZOLE MAGNESIUM
     Indication: Prophylaxis
     Dosage: 20 MG, QD
     Route: 048
     Dates: start: 20241224
  10. SINIL-M [Concomitant]
     Indication: Prophylaxis
     Dosage: 500 MG, BID
     Route: 048
     Dates: start: 20241224
  11. NALOXONE HYDROCHLORIDE\OXYCODONE HYDROCHLORIDE [Concomitant]
     Active Substance: NALOXONE HYDROCHLORIDE\OXYCODONE HYDROCHLORIDE
     Indication: Prophylaxis
     Dosage: UNK, BID
     Route: 048
     Dates: start: 20241224

REACTIONS (2)
  - Acute kidney injury [Fatal]
  - Pleural effusion [Not Recovered/Not Resolved]

NARRATIVE: CASE EVENT DATE: 20241228
